FAERS Safety Report 13016904 (Version 1)
Quarter: 2016Q4

REPORT INFORMATION
  Report Type: Spontaneous
  Country: GB (occurrence: GB)
  Receive Date: 20161212
  Receipt Date: 20161212
  Transmission Date: 20170207
  Serious: Yes (Hospitalization, Other)
  Sender: FDA-Public Use
  Company Number: GB-009507513-1612GBR003550

PATIENT
  Sex: Female

DRUGS (3)
  1. TOBI [Suspect]
     Active Substance: TOBRAMYCIN
     Dosage: 112 MG, TWICE DAILY ALTERNATE MONTHS
     Route: 055
  2. POSACONAZOLE [Suspect]
     Active Substance: POSACONAZOLE
     Dosage: UNK, BID
     Route: 048
  3. AZTREONAM LYSINE [Suspect]
     Active Substance: AZTREONAM LYSINE
     Dosage: 75 MG, NEBULIZATION 3 TIMES A DAY ALTERNATE MONTHS
     Route: 055

REACTIONS (1)
  - Hospitalisation [Unknown]
